FAERS Safety Report 19935415 (Version 9)
Quarter: 2024Q2

REPORT INFORMATION
  Report Type: Spontaneous
  Country: US (occurrence: US)
  Receive Date: 20211008
  Receipt Date: 20240425
  Transmission Date: 20240716
  Serious: Yes (Hospitalization, Other)
  Sender: FDA-Public Use
  Company Number: US-PFIZER INC-2018512864

PATIENT
  Age: 58 Year
  Sex: Female
  Weight: 114 kg

DRUGS (2)
  1. XELJANZ XR [Suspect]
     Active Substance: TOFACITINIB CITRATE
     Indication: Scleritis
     Dosage: 11 MG
  2. XELJANZ XR [Suspect]
     Active Substance: TOFACITINIB CITRATE
     Dosage: TAKE 1 TABLET BY MOUTH DAILY
     Route: 048

REACTIONS (16)
  - COVID-19 [Recovered/Resolved]
  - Drug dependence [Unknown]
  - Kidney infection [Unknown]
  - Nephrolithiasis [Unknown]
  - Arthralgia [Not Recovered/Not Resolved]
  - Tendon rupture [Unknown]
  - Urinary tract infection [Unknown]
  - Muscle spasms [Recovering/Resolving]
  - Fatigue [Unknown]
  - Blood cholesterol increased [Unknown]
  - Pyrexia [Unknown]
  - Chills [Unknown]
  - Musculoskeletal stiffness [Unknown]
  - Pain [Unknown]
  - Blood pressure increased [Unknown]
  - Off label use [Unknown]
